FAERS Safety Report 9776115 (Version 2)
Quarter: 2014Q1

REPORT INFORMATION
  Report Type: Spontaneous
  Country: US (occurrence: US)
  Receive Date: 20131220
  Receipt Date: 20140224
  Transmission Date: 20141002
  Serious: No
  Sender: FDA-Public Use
  Company Number: US-TEVA-452234USA

PATIENT
  Age: 27 Year
  Sex: Female
  Weight: 95.34 kg

DRUGS (2)
  1. PARAGARD 380A [Suspect]
     Indication: CONTRACEPTION
     Route: 015
     Dates: start: 20131116, end: 20131217
  2. BUSPIRONE [Concomitant]
     Indication: DEPRESSION

REACTIONS (1)
  - Device expulsion [Recovered/Resolved]
